FAERS Safety Report 5432215-8 (Version None)
Quarter: 2007Q3

REPORT INFORMATION
  Report Type: 
  Country: None (occurrence: None)
  Receive Date: 20070830
  Receipt Date: 20070820
  Transmission Date: 20080115
  Serious: Yes (Other)
  Sender: FDA-Public Use
  Company Number: US-PFIZER INC-2007069454

PATIENT
  Sex: Female
  Weight: 77.272 kg

DRUGS (3)
  1. NARDIL [Suspect]
     Indication: PANIC DISORDER
  2. MULTIVITAMIN [Concomitant]
  3. CALCIUM [Concomitant]

REACTIONS (3)
  - ANXIETY [None]
  - DIZZINESS [None]
  - HYPOTHYROIDISM [None]
